FAERS Safety Report 7227145-5 (Version None)
Quarter: 2011Q1

REPORT INFORMATION
  Report Type: 
  Country: None (occurrence: None)
  Receive Date: 20110114
  Receipt Date: 20110107
  Transmission Date: 20110831
  Serious: Yes (Other)
  Sender: FDA-Public Use
  Company Number: US-PFIZER INC-2011004985

PATIENT
  Sex: Female
  Weight: 56.689 kg

DRUGS (3)
  1. ZOLOFT [Concomitant]
     Dosage: UNK
  2. PRISTIQ [Suspect]
     Indication: MAJOR DEPRESSION
     Dosage: 50 MG, DAILY
     Route: 048
     Dates: start: 20101201, end: 20110105
  3. CITALOPRAM [Concomitant]
     Dosage: UNK

REACTIONS (5)
  - VOMITING [None]
  - LYMPHOCYTE COUNT INCREASED [None]
  - NAUSEA [None]
  - ABDOMINAL DISCOMFORT [None]
  - INSOMNIA [None]
